FAERS Safety Report 6210821-0 (Version None)
Quarter: 2009Q2

REPORT INFORMATION
  Report Type: 
  Country: None (occurrence: None)
  Receive Date: 20090527
  Receipt Date: 20090513
  Transmission Date: 20091009
  Serious: Yes (Hospitalization, Other)
  Sender: FDA-Public Use
  Company Number: DSU-2009-00415

PATIENT
  Age: 52 Year
  Sex: Male
  Weight: 93.441 kg

DRUGS (11)
  1. BENICAR HCT [Suspect]
     Indication: HYPERTENSION
     Dosage: 40/25 MILLIGRAM (EVERY MORNING), PER ORAL
     Route: 048
     Dates: start: 20080205, end: 20080917
  2. TRILEPTAL [Suspect]
     Indication: EPILEPSY
     Dosage: 1800 MG (600 MG, TID) PER ORAL
     Route: 048
     Dates: start: 20080205
  3. ATIVAN [Concomitant]
  4. ASPIRIN [Concomitant]
  5. CHANTIX DOSE PACK (VARENICLINE) [Concomitant]
  6. VITAMIN B12 [Concomitant]
  7. ALLEGRA (FEXOVENADINE HYDROCHLORIDE) (CAPSULE) (FEXOFENADINE HYDROCHLO [Concomitant]
  8. ANDROGEL (TESTOSTERONE) (GEL) (TESTOSTERONE) [Concomitant]
  9. TRICOR [Concomitant]
  10. PREVACID [Concomitant]
  11. BACTRIM DS [Concomitant]

REACTIONS (11)
  - CONFUSIONAL STATE [None]
  - CONVULSION [None]
  - DISORIENTATION [None]
  - DIZZINESS [None]
  - ERECTILE DYSFUNCTION [None]
  - FALL [None]
  - HYPONATRAEMIA [None]
  - MUSCULOSKELETAL STIFFNESS [None]
  - SLEEP DISORDER [None]
  - TYPE 2 DIABETES MELLITUS [None]
  - UNRESPONSIVE TO STIMULI [None]
